FAERS Safety Report 7770459-0 (Version None)
Quarter: 2011Q3

REPORT INFORMATION
  Report Type: 
  Country: None (occurrence: None)
  Receive Date: 20110922
  Receipt Date: 20100803
  Transmission Date: 20111222
  Serious: No
  Sender: FDA-Public Use
  Company Number: US-ASTRAZENECA-2007UW25213

PATIENT
  Age: 31 Year
  Sex: Male
  Weight: 175.1 kg

DRUGS (10)
  1. LISINOPRIL [Concomitant]
     Dates: start: 20030523
  2. ATENOLOL [Concomitant]
     Dates: start: 20030525
  3. SEROQUEL [Suspect]
     Indication: ANXIETY
     Dosage: 50-100 MG
     Route: 048
     Dates: start: 20040101, end: 20061001
  4. SEROQUEL [Suspect]
     Dosage: 50-100 MG
     Route: 048
     Dates: start: 20040601, end: 20060101
  5. SEROQUEL [Suspect]
     Indication: DEPRESSION
     Dosage: 50-100 MG
     Route: 048
     Dates: start: 20040101, end: 20061001
  6. SEROQUEL [Suspect]
     Route: 048
     Dates: start: 20030522
  7. SERTRALINE HYDROCHLORIDE [Concomitant]
     Dates: start: 20030524
  8. HYDROCHLOROTHIAZIDE [Concomitant]
     Dates: start: 20030526
  9. SEROQUEL [Suspect]
     Route: 048
     Dates: start: 20030522
  10. SEROQUEL [Suspect]
     Dosage: 50-100 MG
     Route: 048
     Dates: start: 20040601, end: 20060101

REACTIONS (9)
  - TYPE 2 DIABETES MELLITUS [None]
  - CYST [None]
  - FALL [None]
  - MUSCULOSKELETAL CHEST PAIN [None]
  - ADVERSE DRUG REACTION [None]
  - PAIN IN EXTREMITY [None]
  - LIMB INJURY [None]
  - ROAD TRAFFIC ACCIDENT [None]
  - DIABETIC COMPLICATION [None]
